FAERS Safety Report 6783354-0 (Version None)
Quarter: 2010Q2

REPORT INFORMATION
  Report Type: 
  Country: None (occurrence: None)
  Receive Date: 20100622
  Receipt Date: 20100615
  Transmission Date: 20101027
  Serious: Yes (Hospitalization)
  Sender: FDA-Public Use
  Company Number: FR-KINGPHARMUSA00001-K201000743

PATIENT
  Age: 57 Year
  Sex: Male

DRUGS (6)
  1. ALTACE [Suspect]
     Dosage: 2.5 MG, BID
     Route: 048
     Dates: start: 20100201
  2. PLAVIX [Suspect]
     Dosage: 75 MG, QD
     Route: 048
     Dates: start: 20100201
  3. KARDEGIC [Suspect]
     Dosage: 160 MG, QD
     Route: 048
     Dates: start: 20100201
  4. CARDENSIEL [Suspect]
     Dosage: 2.5 MG, BID
     Route: 048
     Dates: start: 20100201
  5. TAHOR [Suspect]
     Dosage: 40 MG, QD
     Route: 048
     Dates: start: 20100201
  6. INSULIN DETEMIR [Concomitant]
     Indication: TYPE 2 DIABETES MELLITUS
     Dosage: UNK
     Dates: start: 20060101

REACTIONS (7)
  - BREAST PAIN [None]
  - DIABETES MELLITUS INADEQUATE CONTROL [None]
  - ERECTILE DYSFUNCTION [None]
  - GLYCOSYLATED HAEMOGLOBIN INCREASED [None]
  - GYNAECOMASTIA [None]
  - LOSS OF LIBIDO [None]
  - WEIGHT INCREASED [None]
